FAERS Safety Report 16961294 (Version 1)
Quarter: 2019Q4

REPORT INFORMATION
  Report Type: Spontaneous
  Country: UY (occurrence: UY)
  Receive Date: 20191025
  Receipt Date: 20191025
  Transmission Date: 20200122
  Serious: Yes (Other)
  Sender: FDA-Public Use
  Company Number: UY-REGENERON PHARMACEUTICALS, INC.-2019-62112

PATIENT

DRUGS (2)
  1. EYLEA [Suspect]
     Active Substance: AFLIBERCEPT
     Indication: CHOROIDAL NEOVASCULARISATION
     Dosage: PATIENT RECEIVED FOUR INJECTIONS PRIOR TO EVENT.
     Dates: start: 201905
  2. EYLEA [Suspect]
     Active Substance: AFLIBERCEPT
     Dosage: LAST INJECTION PRIOR TO EVENT.
     Dates: start: 201909, end: 201909

REACTIONS (1)
  - Iris vascular disorder [Unknown]
